FAERS Safety Report 14449877 (Version 2)
Quarter: 2018Q2

REPORT INFORMATION
  Report Type: Report from Study
  Country: JP (occurrence: JP)
  Receive Date: 20180128
  Receipt Date: 20180607
  Transmission Date: 20180711
  Serious: Yes (Other)
  Sender: FDA-Public Use
  Company Number: JP-AMGEN-JPNNI2018011341

PATIENT
  Age: 8 Decade
  Sex: Female
  Weight: 51 kg

DRUGS (11)
  1. AMLODIN [Concomitant]
     Active Substance: AMLODIPINE BESYLATE
     Dosage: 2.5 MG, QD
     Route: 048
     Dates: start: 20160119
  2. DENOSUMAB [Suspect]
     Active Substance: DENOSUMAB
     Dosage: 60 MG, UNK
     Route: 058
     Dates: start: 20150415
  3. DENOSUMAB [Suspect]
     Active Substance: DENOSUMAB
     Dosage: 60 MG, UNK
     Route: 058
     Dates: start: 20151013
  4. BUP-4 [Concomitant]
     Active Substance: PROPIVERINE
     Dosage: 1 DF, QD
     Route: 048
     Dates: start: 20160216
  5. DENOSUMAB [Suspect]
     Active Substance: DENOSUMAB
     Indication: OSTEOPOROSIS
     Dosage: 60 MG, UNK
     Route: 058
     Dates: start: 20140415
  6. DENOSUMAB [Suspect]
     Active Substance: DENOSUMAB
     Dosage: 60 MG, UNK
     Route: 058
     Dates: start: 20160416, end: 20160416
  7. ASPARA-CA [Suspect]
     Active Substance: CALCIUM ASPARTATE
     Indication: PRODUCT USED FOR UNKNOWN INDICATION
     Dosage: 3 DF, QD
     Route: 048
     Dates: start: 20150131, end: 20160620
  8. DENOSUMAB [Suspect]
     Active Substance: DENOSUMAB
     Dosage: 60 MG, UNK
     Route: 058
     Dates: start: 20141014
  9. ONEALFA [Suspect]
     Active Substance: ALFACALCIDOL
     Indication: PRODUCT USED FOR UNKNOWN INDICATION
     Dosage: 0.5 MUG, QD
     Route: 048
     Dates: start: 20150604, end: 20160620
  10. URSO [Concomitant]
     Active Substance: URSODIOL
     Dosage: 1 DF, QD
     Route: 048
  11. SUMILU [Concomitant]
     Active Substance: FELBINAC
     Dosage: UNK, QD
     Route: 061
     Dates: start: 20160502

REACTIONS (5)
  - Diarrhoea [Unknown]
  - Hyperkeratosis [Recovered/Resolved]
  - Epistaxis [Recovering/Resolving]
  - Hypothyroidism [Unknown]
  - Nephrolithiasis [Unknown]

NARRATIVE: CASE EVENT DATE: 201604
